FAERS Safety Report 10008691 (Version 2)
Quarter: 2014Q1

REPORT INFORMATION
  Report Type: Spontaneous
  Country: US (occurrence: US)
  Receive Date: 20140312
  Receipt Date: 20140312
  Transmission Date: 20141002
  Serious: No
  Sender: FDA-Public Use
  Company Number: US-INCYTE CORPORATION-2012IN000385

PATIENT
  Sex: Male
  Weight: 74.38 kg

DRUGS (7)
  1. JAKAFI [Suspect]
     Indication: MYELOFIBROSIS
     Dosage: 5 MG, BID
     Route: 048
     Dates: start: 20120214
  2. AVODART [Concomitant]
     Dosage: UNK
  3. SYNTHROID [Concomitant]
     Dosage: UNK
  4. HYDROCHLOROTHIAZIDE [Concomitant]
     Dosage: UNK
  5. HYDROMAX [Concomitant]
     Dosage: UNK
  6. CENTRUM SILVER [Concomitant]
     Dosage: 1 TAB, QD
     Route: 048
  7. BENADRYL [Concomitant]

REACTIONS (5)
  - Epistaxis [Not Recovered/Not Resolved]
  - Blood pH decreased [Unknown]
  - Pollakiuria [Not Recovered/Not Resolved]
  - Nocturia [Not Recovered/Not Resolved]
  - Contusion [Not Recovered/Not Resolved]
